FAERS Safety Report 13823730 (Version 1)
Quarter: 2017Q3

REPORT INFORMATION
  Report Type: Spontaneous
  Country: IT (occurrence: IT)
  Receive Date: 20170802
  Receipt Date: 20170802
  Transmission Date: 20171127
  Serious: Yes (Hospitalization, Other)
  Sender: FDA-Public Use
  Company Number: IT-ACCORD-056455

PATIENT
  Age: 42 Year
  Sex: Female

DRUGS (5)
  1. VALPROIC ACID. [Interacting]
     Active Substance: VALPROIC ACID
     Indication: PRODUCT USED FOR UNKNOWN INDICATION
     Dosage: 800 MG/DAY
  2. SERTRALINE [Interacting]
     Active Substance: SERTRALINE HYDROCHLORIDE
     Indication: PRODUCT USED FOR UNKNOWN INDICATION
  3. ZUCLOPENTHIXOL [Concomitant]
     Active Substance: ZUCLOPENTHIXOL
  4. CLOZAPINE. [Interacting]
     Active Substance: CLOZAPINE
     Indication: BORDERLINE PERSONALITY DISORDER
     Dates: start: 2007
  5. CLOZAPINE. [Suspect]
     Active Substance: CLOZAPINE
     Indication: SCHIZOPHRENIA
     Dates: start: 2007

REACTIONS (10)
  - Neutrophilia [Recovered/Resolved]
  - Monocytosis [Recovered/Resolved]
  - Serositis [Recovered/Resolved]
  - Hypoalbuminaemia [Recovered/Resolved]
  - Leukocytosis [Recovered/Resolved]
  - Pleural effusion [Recovered/Resolved]
  - Drug interaction [Recovered/Resolved]
  - Pericarditis [Recovered/Resolved]
  - Pericardial effusion [Recovered/Resolved]
  - Pleurisy [Recovered/Resolved]

NARRATIVE: CASE EVENT DATE: 20160617
